FAERS Safety Report 9910153 (Version 6)
Quarter: 2014Q3

REPORT INFORMATION
  Report Type: Spontaneous
  Country: US (occurrence: US)
  Receive Date: 20140219
  Receipt Date: 20140828
  Transmission Date: 20150326
  Serious: Yes (Hospitalization, Other)
  Sender: FDA-Public Use
  Company Number: US-009507513-1203USA02662

PATIENT
  Sex: Female
  Weight: 104.31 kg

DRUGS (3)
  1. ALENDRONATE SODIUM. [Suspect]
     Active Substance: ALENDRONATE SODIUM
     Dosage: 70 MG, UNK
     Route: 048
  2. FOSAMAX [Suspect]
     Active Substance: ALENDRONATE SODIUM
     Route: 048
  3. FOSAMAX [Suspect]
     Active Substance: ALENDRONATE SODIUM
     Dosage: 70 MG, QW
     Route: 048

REACTIONS (33)
  - Femur fracture [Recovering/Resolving]
  - Lower gastrointestinal haemorrhage [Unknown]
  - Spinal osteoarthritis [Not Recovered/Not Resolved]
  - Large intestine polyp [Unknown]
  - Enthesopathy [Unknown]
  - Cellulitis [Unknown]
  - Knee arthroplasty [Unknown]
  - Hysterectomy [Unknown]
  - Type 2 diabetes mellitus [Unknown]
  - Intervertebral disc protrusion [Unknown]
  - Neuropathy peripheral [Unknown]
  - Osteoarthritis [Unknown]
  - Rheumatoid arthritis [Unknown]
  - Patella fracture [Unknown]
  - Hypertension [Unknown]
  - Intramedullary rod insertion [Unknown]
  - Anaemia postoperative [Unknown]
  - Knee arthroplasty [Unknown]
  - Fall [Unknown]
  - Anaemia [Not Recovered/Not Resolved]
  - Varices oesophageal [Unknown]
  - Osteoporosis [Unknown]
  - Pain in extremity [Unknown]
  - Hypoglycaemia [Unknown]
  - Cervical spinal stenosis [Unknown]
  - Intervertebral disc space narrowing [Unknown]
  - Gastrooesophageal reflux disease [Unknown]
  - Sepsis [Unknown]
  - Gastroenteritis viral [Unknown]
  - Lumbar spinal stenosis [Unknown]
  - Large intestinal polypectomy [Unknown]
  - Spinal osteoarthritis [Unknown]
  - Arthralgia [Unknown]

NARRATIVE: CASE EVENT DATE: 1995
